FAERS Safety Report 14196250 (Version 1)
Quarter: 2017Q4

REPORT INFORMATION
  Report Type: Spontaneous
  Country: US (occurrence: None)
  Receive Date: 20171116
  Receipt Date: 20171116
  Transmission Date: 20180321
  Serious: Yes (Disabling)
  Sender: FDA-Public Use
  Company Number: None

PATIENT
  Age: 70 Month
  Sex: Female
  Weight: 67.13 kg

DRUGS (4)
  1. BONIVA [Suspect]
     Active Substance: IBANDRONATE SODIUM
     Indication: OSTEOPOROSIS
     Route: 048
     Dates: start: 20170824, end: 20170925
  2. MULTIVITAMIN [Concomitant]
     Active Substance: VITAMINS
  3. MONTELUKAST SOD [Concomitant]
     Active Substance: MONTELUKAST SODIUM
  4. CALCIUM W/ MAGNESIUM + VITAMIN D3 [Concomitant]

REACTIONS (5)
  - Musculoskeletal pain [None]
  - Chest pain [None]
  - Neck pain [None]
  - Back pain [None]
  - Musculoskeletal chest pain [None]

NARRATIVE: CASE EVENT DATE: 20170824
